FAERS Safety Report 24593230 (Version 6)
Quarter: 2025Q1

REPORT INFORMATION
  Report Type: Report from Study
  Country: CA (occurrence: CA)
  Receive Date: 20241108
  Receipt Date: 20250301
  Transmission Date: 20250409
  Serious: Yes (Other)
  Sender: TAKEDA
  Company Number: CA-TAKEDA-2019TUS043996

PATIENT
  Age: 45 Year
  Sex: Female

DRUGS (18)
  1. VEDOLIZUMAB [Suspect]
     Active Substance: VEDOLIZUMAB
     Indication: Colitis ulcerative
  2. VEDOLIZUMAB [Suspect]
     Active Substance: VEDOLIZUMAB
  3. VEDOLIZUMAB [Suspect]
     Active Substance: VEDOLIZUMAB
     Dosage: 300 MILLIGRAM, Q4WEEKS
     Dates: start: 20250124
  4. VEDOLIZUMAB [Suspect]
     Active Substance: VEDOLIZUMAB
     Indication: Colitis ulcerative
     Dosage: 108 MILLIGRAM, Q2WEEKS
     Dates: start: 20220222
  5. MESALAMINE [Concomitant]
     Active Substance: MESALAMINE
     Dosage: UNK UNK, QD
     Dates: start: 20081101
  6. ANAPROX [Concomitant]
     Active Substance: NAPROXEN SODIUM
  7. RITALIN [Concomitant]
     Active Substance: METHYLPHENIDATE HYDROCHLORIDE
     Dosage: 20 MILLIGRAM, QD
  8. TRAZODONE [Concomitant]
     Active Substance: TRAZODONE HYDROCHLORIDE
     Dosage: UNK UNK, QD
  9. DICYCLOMINE HYDROCHLORIDE [Concomitant]
     Active Substance: DICYCLOMINE HYDROCHLORIDE
     Indication: Abdominal pain
  10. METFORMIN [Concomitant]
     Active Substance: METFORMIN HYDROCHLORIDE
     Dosage: 500 MILLIGRAM, QD
  11. LYRICA [Concomitant]
     Active Substance: PREGABALIN
     Dosage: 50 MILLIGRAM, QD
  12. CORTISONE [Concomitant]
     Active Substance: CORTISONE
  13. CLOTRIMAZOLE [Concomitant]
     Active Substance: CLOTRIMAZOLE
  14. DIABETA [Concomitant]
     Active Substance: GLYBURIDE
     Dosage: 2.5 MILLIGRAM, QD
  15. CALCIUM\VITAMIN D [Concomitant]
     Active Substance: CALCIUM\VITAMIN D
     Dosage: 500 MILLIGRAM, QD
  16. CEPHALEXIN [Concomitant]
     Active Substance: CEPHALEXIN
     Dosage: 250 MILLIGRAM, QID
     Dates: start: 20170108
  17. ALESSE 28 [Concomitant]
     Active Substance: ETHINYL ESTRADIOL\LEVONORGESTREL
     Indication: Oral contraception
  18. IMURAN [Concomitant]
     Active Substance: AZATHIOPRINE
     Dosage: UNK UNK, QD
     Dates: start: 20081130

REACTIONS (11)
  - Dizziness [Recovered/Resolved]
  - Vomiting [Recovered/Resolved]
  - Nausea [Recovered/Resolved]
  - Colitis ulcerative [Unknown]
  - Diarrhoea [Unknown]
  - Frequent bowel movements [Unknown]
  - Abdominal pain upper [Unknown]
  - Drug ineffective [Unknown]
  - Off label use [Unknown]
  - Abdominal pain [Unknown]
  - Flatulence [Unknown]

NARRATIVE: CASE EVENT DATE: 20250124
